FAERS Safety Report 4536576-3 (Version None)
Quarter: 2004Q4

REPORT INFORMATION
  Report Type: 
  Country: None (occurrence: None)
  Receive Date: 20041220
  Receipt Date: 20041214
  Transmission Date: 20050328
  Serious: Yes (Death)
  Sender: FDA-Public Use
  Company Number: 2015383

PATIENT
  Age: 2 Year
  Sex: Female
  Weight: 12.2 kg

DRUGS (1)
  1. OXYCODONE HCL [Suspect]
     Dosage: ORAL
     Route: 048

REACTIONS (14)
  - ANTIBODY TEST POSITIVE [None]
  - BLOOD IMMUNOGLOBULIN E INCREASED [None]
  - BLOOD LEAD INCREASED [None]
  - BRONCHOPNEUMONIA [None]
  - CARDIOMEGALY [None]
  - CIRCULATORY COLLAPSE [None]
  - CONTUSION [None]
  - DRUG TOXICITY [None]
  - EXCORIATION [None]
  - GRAM STAIN POSITIVE [None]
  - OVERDOSE [None]
  - PNEUMONIA STAPHYLOCOCCAL [None]
  - PNEUMONITIS [None]
  - SUBCUTANEOUS HAEMATOMA [None]
